FAERS Safety Report 8078650-3 (Version None)
Quarter: 2012Q1

REPORT INFORMATION
  Report Type: 
  Country: None (occurrence: None)
  Receive Date: 20120124
  Receipt Date: 20120116
  Transmission Date: 20120608
  Serious: Yes (Hospitalization, Other)
  Sender: FDA-Public Use
  Company Number: AUR-APL-2012-00178

PATIENT
  Age: 52 Year
  Sex: Male

DRUGS (5)
  1. NEXIUM [Concomitant]
  2. MIRTAZAPINE [Suspect]
     Indication: SUICIDE ATTEMPT
     Dosage: (180 MG,TOTAL),ORAL (1 DOSAGE FORMS), ORAL
     Route: 048
     Dates: start: 20111221, end: 20111221
  3. ZOLOFT [Suspect]
     Indication: SUICIDE ATTEMPT
     Dosage: (6 DOSAGE FORMS,TOTAL),ORAL
     Route: 048
     Dates: start: 20111221, end: 20111221
  4. CLONAZEPAM [Suspect]
     Indication: SUICIDE ATTEMPT
     Dosage: (1 DOSAGE FORMS,TOTAL), ORAL
     Route: 048
     Dates: start: 20111221, end: 20111221
  5. MICARDIS [Concomitant]

REACTIONS (3)
  - SUICIDE ATTEMPT [None]
  - DRUG ABUSE [None]
  - SOMNOLENCE [None]
